FAERS Safety Report 6713807-2 (Version None)
Quarter: 2010Q2

REPORT INFORMATION
  Report Type: 
  Country: None (occurrence: None)
  Receive Date: 20100506
  Receipt Date: 20100427
  Transmission Date: 20101027
  Serious: Yes (Other)
  Sender: FDA-Public Use
  Company Number: PT-GILEAD-2010-0028462

PATIENT
  Age: 37 Year
  Sex: Female

DRUGS (6)
  1. VIREAD [Suspect]
     Indication: HIV INFECTION
     Dates: start: 20041201, end: 20080901
  2. EMTRIVA [Concomitant]
     Indication: HIV INFECTION
  3. EFAVIRENZ [Concomitant]
  4. PRAVASTATIN [Concomitant]
  5. FENOFIBRATE [Concomitant]
  6. LOPINAVIR [Concomitant]

REACTIONS (4)
  - BONE PAIN [None]
  - DYSLIPIDAEMIA [None]
  - FEMORAL NECK FRACTURE [None]
  - RENAL FAILURE [None]
